FAERS Safety Report 4940404-1 (Version None)
Quarter: 2006Q1

REPORT INFORMATION
  Report Type: 
  Country: None (occurrence: None)
  Receive Date: 20060310
  Receipt Date: 20050302
  Transmission Date: 20060701
  Serious: Yes (Death)
  Sender: FDA-Public Use
  Company Number: US-MERCK-0503USA00577

PATIENT
  Age: 55 Year
  Sex: Male
  Weight: 83 kg

DRUGS (3)
  1. VIOXX [Suspect]
     Indication: SHOULDER PAIN
     Route: 048
     Dates: start: 20030801, end: 20040127
  2. MOTRIN [Concomitant]
     Route: 065
  3. ASPIRIN [Concomitant]
     Route: 065

REACTIONS (3)
  - ACUTE MYOCARDIAL INFARCTION [None]
  - CEREBROVASCULAR ACCIDENT [None]
  - SUDDEN CARDIAC DEATH [None]
